FAERS Safety Report 8734814 (Version 6)
Quarter: 2013Q3

REPORT INFORMATION
  Report Type: Spontaneous
  Country: US (occurrence: US)
  Receive Date: 20120821
  Receipt Date: 20130806
  Transmission Date: 20140515
  Serious: Yes (Other)
  Sender: FDA-Public Use
  Company Number: US-PFIZER INC-2012199787

PATIENT
  Age: 36 Year
  Sex: Female

DRUGS (2)
  1. ZOLOFT [Suspect]
     Indication: DEPRESSION
     Dosage: 50 MG, UNK
     Dates: start: 1996
  2. RISPERDAL [Suspect]
     Dosage: UNK

REACTIONS (20)
  - Abortion spontaneous [Unknown]
  - Drug hypersensitivity [Unknown]
  - Confusional state [Unknown]
  - Disturbance in attention [Unknown]
  - Insomnia [Unknown]
  - Headache [Unknown]
  - Breast swelling [Unknown]
  - Abdominal pain upper [Unknown]
  - Vomiting [Unknown]
  - Hypoaesthesia [Unknown]
  - Peripheral coldness [Unknown]
  - Feeling abnormal [Unknown]
  - Paraesthesia [Unknown]
  - Neck pain [Unknown]
  - Musculoskeletal stiffness [Unknown]
  - Extrasystoles [Unknown]
  - Dyspnoea [Unknown]
  - Stress [Unknown]
  - General physical health deterioration [Unknown]
  - Malaise [Unknown]
